FAERS Safety Report 8522206-2 (Version None)
Quarter: 2012Q3

REPORT INFORMATION
  Report Type: 
  Country: None (occurrence: None)
  Receive Date: 20120719
  Receipt Date: 20120709
  Transmission Date: 20120928
  Serious: Yes (Other)
  Sender: FDA-Public Use
  Company Number: JP-VERTEX PHARMACEUTICALS INC.-AE-2012-010242

PATIENT
  Age: 72 Year
  Sex: Male

DRUGS (15)
  1. TELAVIC (TELAPREVIR) [Suspect]
     Indication: HEPATITIS C
     Route: 048
     Dates: start: 20120403, end: 20120610
  2. PEGINTERFERON ALFA-2B [Concomitant]
     Route: 058
     Dates: start: 20120507, end: 20120513
  3. PEGINTERFERON ALFA-2B [Concomitant]
     Route: 058
     Dates: start: 20120514, end: 20120610
  4. RIBAVIRIN [Concomitant]
     Indication: HEPATITIS C
     Route: 048
     Dates: start: 20120403, end: 20120506
  5. RIBAVIRIN [Concomitant]
     Route: 048
     Dates: start: 20120507, end: 20120612
  6. OLOPATADINE HCL [Concomitant]
     Route: 048
     Dates: start: 20120406, end: 20120411
  7. SLOW-K [Concomitant]
     Route: 048
     Dates: start: 20120521, end: 20120612
  8. PEGINTERFERON ALFA-2B [Concomitant]
     Indication: HEPATITIS C
     Route: 058
     Dates: start: 20120403, end: 20120506
  9. LOXONIN [Concomitant]
     Route: 048
     Dates: start: 20120417, end: 20120422
  10. TRAVELMIN [Concomitant]
     Route: 048
     Dates: start: 20120612, end: 20120618
  11. TELAVIC (TELAPREVIR) [Suspect]
     Route: 048
     Dates: start: 20120611, end: 20120612
  12. FAMOTIDINE [Concomitant]
     Route: 048
     Dates: start: 20120423, end: 20120618
  13. ACETAMINOPHEN [Concomitant]
     Route: 048
     Dates: start: 20120423, end: 20120506
  14. ALLOPURINOL [Concomitant]
     Route: 048
     Dates: start: 20120423, end: 20120618
  15. GASMOTIN [Concomitant]
     Route: 048
     Dates: start: 20120604, end: 20120618

REACTIONS (2)
  - DECREASED APPETITE [None]
  - ANAEMIA [None]
